FAERS Safety Report 7517849-9 (Version None)
Quarter: 2011Q2

REPORT INFORMATION
  Report Type: 
  Country: None (occurrence: None)
  Receive Date: 20110602
  Receipt Date: 20110527
  Transmission Date: 20111010
  Serious: Yes (Other)
  Sender: FDA-Public Use
  Company Number: US-BRISTOL-MYERS SQUIBB COMPANY-15785389

PATIENT

DRUGS (3)
  1. RITONAVIR [Suspect]
  2. TRUVADA [Suspect]
  3. REYATAZ [Suspect]

REACTIONS (2)
  - NEPHROLITHIASIS [None]
  - RENAL FAILURE ACUTE [None]
